FAERS Safety Report 16418987 (Version 1)
Quarter: 2019Q2

REPORT INFORMATION
  Report Type: Spontaneous
  Country: US (occurrence: US)
  Receive Date: 20190612
  Receipt Date: 20190612
  Transmission Date: 20190711
  Serious: No
  Sender: FDA-Public Use
  Company Number: US-TEVA-2019-US-1052832

PATIENT

DRUGS (1)
  1. LAMOTRIGINE EXTENDED-RELEASE ACTAVIS [Suspect]
     Active Substance: LAMOTRIGINE
     Dosage: EXTENDED-RELEASE TABLETS

REACTIONS (1)
  - Adverse event [Unknown]
